FAERS Safety Report 17893083 (Version 1)
Quarter: 2020Q2

REPORT INFORMATION
  Report Type: Spontaneous
  Country: US (occurrence: US)
  Receive Date: 20200614
  Receipt Date: 20200614
  Transmission Date: 20200714
  Serious: No
  Sender: FDA-Public Use
  Company Number: US-ASTRAZENECA-2020SE72157

PATIENT
  Age: 1054 Month
  Sex: Male
  Weight: 86.2 kg

DRUGS (9)
  1. LOSARTAN. [Concomitant]
     Active Substance: LOSARTAN
     Indication: BLOOD PRESSURE ABNORMAL
     Dosage: DAILY
     Route: 048
  2. MONTELUKAST SODIUM. [Concomitant]
     Active Substance: MONTELUKAST SODIUM
     Indication: ANTIALLERGIC THERAPY
     Route: 048
  3. DIOVAN [Concomitant]
     Active Substance: VALSARTAN
     Indication: BLOOD PRESSURE MEASUREMENT
  4. ATORVASTATIN [Concomitant]
     Active Substance: ATORVASTATIN
     Dosage: ABOUT 6 MONTHS AGO
  5. ATROVENT HFA [Concomitant]
     Active Substance: IPRATROPIUM BROMIDE
     Indication: ASTHMA
     Route: 055
  6. SYMBICORT [Suspect]
     Active Substance: BUDESONIDE\FORMOTEROL FUMARATE DIHYDRATE
     Indication: ASTHMA
     Dosage: SYMBICORT 160/4.5MCG 2 PUFFS TWICE DAILY
     Route: 055
     Dates: start: 202002
  7. ALLOPURINOL. [Concomitant]
     Active Substance: ALLOPURINOL
     Indication: GOUT
     Route: 048
  8. FLOMAX [Concomitant]
     Active Substance: TAMSULOSIN HYDROCHLORIDE
     Indication: PROSTATE INFECTION
     Route: 048
  9. FLOVENT DISKUS [Concomitant]
     Active Substance: FLUTICASONE PROPIONATE
     Indication: BLOOD PRESSURE MEASUREMENT

REACTIONS (6)
  - Device issue [Unknown]
  - Circumstance or information capable of leading to medication error [Unknown]
  - Drug ineffective [Unknown]
  - Intentional device misuse [Unknown]
  - Cough [Not Recovered/Not Resolved]
  - Wrong technique in device usage process [Unknown]

NARRATIVE: CASE EVENT DATE: 202005
